FAERS Safety Report 9495179 (Version 2)
Quarter: 2013Q3

REPORT INFORMATION
  Report Type: Spontaneous
  Country: US (occurrence: US)
  Receive Date: 20130903
  Receipt Date: 20130919
  Transmission Date: 20140515
  Serious: Yes (Hospitalization, Other)
  Sender: FDA-Public Use
  Company Number: US-UCBSA-096100

PATIENT
  Age: 36 Year
  Sex: Male

DRUGS (2)
  1. KEPPRA [Suspect]
     Indication: CONVULSION
     Dosage: 5000 QD
     Dates: start: 2012
  2. DEPAKOTE [Concomitant]
     Dates: end: 2012

REACTIONS (9)
  - Grand mal convulsion [Recovered/Resolved]
  - Injury [Unknown]
  - Head injury [Recovering/Resolving]
  - Fall [Unknown]
  - Laceration [Unknown]
  - Tooth fracture [Recovered/Resolved]
  - Amnesia [Recovering/Resolving]
  - Anticonvulsant drug level decreased [Unknown]
  - Overdose [Unknown]
